FAERS Safety Report 4392601-4 (Version None)
Quarter: 2004Q3

REPORT INFORMATION
  Report Type: 
  Country: None (occurrence: None)
  Receive Date: 20040702
  Receipt Date: 20040629
  Transmission Date: 20050211
  Serious: Yes (Other)
  Sender: FDA-Public Use
  Company Number: HQWYE773129JUN04

PATIENT
  Age: 81 Year
  Sex: Female

DRUGS (3)
  1. CORDAREX (AMIODARONE, INJECTION) [Suspect]
     Dosage: 150 MG SOLUTION, INTRAVENOUS; SEE IMAGE
     Route: 042
     Dates: start: 20040524, end: 20040101
  2. CORDAREX (AMIODARONE, INJECTION) [Suspect]
     Dosage: 150 MG SOLUTION, INTRAVENOUS; SEE IMAGE
     Route: 042
     Dates: start: 20040101, end: 20040601
  3. CORDAREX (AMIODARONE, INJECTION) [Suspect]
     Dosage: 150 MG SOLUTION, INTRAVENOUS; SEE IMAGE
     Route: 042
     Dates: start: 20040601

REACTIONS (3)
  - CONSTIPATION [None]
  - EPIGASTRIC DISCOMFORT [None]
  - LUNG INFILTRATION [None]
